FAERS Safety Report 14628216 (Version 1)
Quarter: 2018Q1

REPORT INFORMATION
  Report Type: Spontaneous
  Country: US (occurrence: US)
  Receive Date: 20180312
  Receipt Date: 20180312
  Transmission Date: 20180509
  Serious: No
  Sender: FDA-Public Use
  Company Number: US-ALLERGAN-1731398US

PATIENT
  Age: 58 Year
  Sex: Female
  Weight: 77.98 kg

DRUGS (1)
  1. ESTRACE [Suspect]
     Active Substance: ESTRADIOL
     Indication: VULVOVAGINAL DRYNESS
     Dosage: 1 APPLICATOR, EVERY SUNDAY NIGHT
     Route: 067
     Dates: start: 20170710

REACTIONS (1)
  - Malabsorption from administration site [Recovered/Resolved]

NARRATIVE: CASE EVENT DATE: 201707
